FAERS Safety Report 8421142-X (Version None)
Quarter: 2012Q2

REPORT INFORMATION
  Report Type: 
  Country: None (occurrence: None)
  Receive Date: 20120608
  Receipt Date: 20120531
  Transmission Date: 20120825
  Serious: Yes (Hospitalization)
  Sender: FDA-Public Use
  Company Number: DE-JNJFOC-20120405527

PATIENT
  Sex: Male

DRUGS (10)
  1. SIMVASTATIN [Concomitant]
  2. RIVAROXABAN [Suspect]
     Indication: ILL-DEFINED DISORDER
     Route: 048
  3. DARIFENACIN [Concomitant]
  4. ACETYLCYSTEINE [Concomitant]
  5. GLIMEPIRIDE [Concomitant]
     Indication: DIABETES MELLITUS
  6. TILIDIN N [Concomitant]
  7. ACETYLSALICYLIC ACID SRT [Suspect]
     Indication: CORONARY ARTERY DISEASE
  8. LORAZEPAM [Concomitant]
  9. NITROGLYCERIN [Concomitant]
  10. DILTIAZEM [Concomitant]

REACTIONS (2)
  - GASTROINTESTINAL HAEMORRHAGE [None]
  - EPISTAXIS [None]
